FAERS Safety Report 9374904 (Version 2)
Quarter: 2013Q3

REPORT INFORMATION
  Report Type: Spontaneous
  Country: US (occurrence: US)
  Receive Date: 20130628
  Receipt Date: 20130813
  Transmission Date: 20140515
  Serious: Yes (Hospitalization, Disabling, Other)
  Sender: FDA-Public Use
  Company Number: US-ASTRAZENECA-2013SE48032

PATIENT
  Age: 61 Year
  Sex: Male
  Weight: 90.7 kg

DRUGS (15)
  1. NEXIUM [Suspect]
     Indication: GASTROOESOPHAGEAL REFLUX DISEASE
     Dosage: 20 MG OR 40 MG, DAILY
     Route: 048
     Dates: start: 2002
  2. NEXIUM [Suspect]
     Indication: HIATUS HERNIA
     Dosage: 20 MG OR 40 MG, DAILY
     Route: 048
     Dates: start: 2002
  3. NEXIUM [Suspect]
     Indication: GASTROOESOPHAGEAL REFLUX DISEASE
     Route: 048
  4. NEXIUM [Suspect]
     Indication: HIATUS HERNIA
     Route: 048
  5. SPIRIVA [Suspect]
     Route: 065
  6. FLOMAX [Suspect]
     Route: 065
  7. SULCRAFATE [Concomitant]
     Indication: HYPERCHLORHYDRIA
     Dosage: PRN
     Route: 048
  8. PHERNERGAN [Concomitant]
     Route: 048
  9. LACTULOSE [Concomitant]
     Route: 048
  10. ZANTAC [Concomitant]
  11. TUMS [Concomitant]
  12. ROLAIDS [Concomitant]
  13. PROTONIX [Concomitant]
  14. PHENERGAN [Concomitant]
  15. REGLAN [Concomitant]

REACTIONS (26)
  - Fall [Unknown]
  - Hip fracture [Recovered/Resolved with Sequelae]
  - Spinal fracture [Unknown]
  - Intervertebral disc protrusion [Not Recovered/Not Resolved]
  - Road traffic accident [Unknown]
  - Upper limb fracture [Unknown]
  - Fibula fracture [Recovered/Resolved with Sequelae]
  - Tibia fracture [Recovered/Resolved with Sequelae]
  - Loss of consciousness [Recovered/Resolved]
  - Pulmonary embolism [Recovered/Resolved]
  - Subdural haematoma [Recovered/Resolved]
  - Gait disturbance [Not Recovered/Not Resolved]
  - Dysstasia [Not Recovered/Not Resolved]
  - Intervertebral disc compression [Unknown]
  - Hiatus hernia [Not Recovered/Not Resolved]
  - Emotional disorder [Unknown]
  - Gastrooesophageal reflux disease [Not Recovered/Not Resolved]
  - Dizziness [Unknown]
  - Gastrointestinal erosion [Unknown]
  - Gastric pH decreased [Unknown]
  - Abdominal discomfort [Unknown]
  - Mobility decreased [Unknown]
  - Eructation [Unknown]
  - Gastrointestinal disorder [Unknown]
  - Intervertebral disc disorder [Unknown]
  - Drug dose omission [Unknown]
